FAERS Safety Report 7561598-8 (Version None)
Quarter: 2011Q2

REPORT INFORMATION
  Report Type: 
  Country: None (occurrence: None)
  Receive Date: 20110621
  Receipt Date: 20110615
  Transmission Date: 20111010
  Serious: Yes (Hospitalization)
  Sender: FDA-Public Use
  Company Number: US-B.I. PHARMACEUTICALS,INC./RIDGEFIELD-2011-BP-13965BP

PATIENT
  Sex: Female

DRUGS (3)
  1. SPIRONOLACTONE [Concomitant]
     Indication: HYPERTENSION
     Dosage: 25 MG
     Route: 048
  2. AGGRENOX [Suspect]
     Indication: PROPHYLAXIS
     Route: 048
     Dates: start: 20110501, end: 20110501
  3. ASPIRIN [Concomitant]
     Indication: TRANSIENT ISCHAEMIC ATTACK
     Dosage: 325 MG
     Route: 048

REACTIONS (3)
  - TRANSIENT ISCHAEMIC ATTACK [None]
  - PARAESTHESIA [None]
  - HEADACHE [None]
